FAERS Safety Report 26021412 (Version 1)
Quarter: 2025Q4

REPORT INFORMATION
  Report Type: Spontaneous
  Country: US (occurrence: US)
  Receive Date: 20251110
  Receipt Date: 20251110
  Transmission Date: 20260117
  Serious: No
  Sender: EVOFEM
  Company Number: US-EVOFEM, INC.-2025-EVO-US000004

PATIENT

DRUGS (2)
  1. SOLOSEC [Suspect]
     Active Substance: SECNIDAZOLE
     Indication: Bacterial vaginosis
     Dosage: 1 UNK
     Route: 065
     Dates: start: 20250317, end: 20250317
  2. SOLOSEC [Suspect]
     Active Substance: SECNIDAZOLE
     Dosage: UNKNOWN DOSE AND FREQUENCY
     Route: 065

REACTIONS (1)
  - Hot flush [Recovered/Resolved]

NARRATIVE: CASE EVENT DATE: 20250318
